FAERS Safety Report 15561456 (Version 2)
Quarter: 2018Q4

REPORT INFORMATION
  Report Type: Spontaneous
  Country: US (occurrence: US)
  Receive Date: 20181029
  Receipt Date: 20181121
  Transmission Date: 20190205
  Serious: No
  Sender: FDA-Public Use
  Company Number: US-GLAXOSMITHKLINE-US2018189745

PATIENT
  Age: 61 Year
  Sex: Male

DRUGS (2)
  1. NICORETTE WHITE ICE MINT [Suspect]
     Active Substance: NICOTINE
     Indication: SMOKING CESSATION THERAPY
     Dosage: 4 MG, UNK
     Dates: start: 20181016, end: 20181017
  2. NICORETTE WHITE ICE MINT [Suspect]
     Active Substance: NICOTINE
     Dosage: I CHEWED 2
     Dates: start: 20181016, end: 20181017

REACTIONS (3)
  - Headache [Recovered/Resolved]
  - Product taste abnormal [Unknown]
  - Product complaint [Unknown]

NARRATIVE: CASE EVENT DATE: 20181016
